FAERS Safety Report 19079542 (Version 1)
Quarter: 2021Q1

REPORT INFORMATION
  Report Type: Spontaneous
  Country: IR (occurrence: IR)
  Receive Date: 20210331
  Receipt Date: 20210331
  Transmission Date: 20210420
  Serious: Yes (Hospitalization, Other)
  Sender: FDA-Public Use
  Company Number: IR-VALIDUS PHARMACEUTICALS LLC-IR-2021VAL000907

PATIENT
  Age: 46 Year
  Sex: Female

DRUGS (7)
  1. FUROSEMIDE. [Suspect]
     Active Substance: FUROSEMIDE
     Indication: PRODUCT USED FOR UNKNOWN INDICATION
     Dosage: 20 MG, Q12H
     Route: 065
  2. LEVOTHYROXINE SODIUM. [Suspect]
     Active Substance: LEVOTHYROXINE SODIUM
     Indication: PRODUCT USED FOR UNKNOWN INDICATION
     Dosage: 1 DF, QD
     Route: 058
  3. GLIBENCLAMIDE [Suspect]
     Active Substance: GLYBURIDE
     Indication: PRODUCT USED FOR UNKNOWN INDICATION
     Dosage: UNK
     Route: 065
  4. TRIAMTERENE HCTZ [Suspect]
     Active Substance: HYDROCHLOROTHIAZIDE\TRIAMTERENE
     Indication: PRODUCT USED FOR UNKNOWN INDICATION
     Dosage: 1 DF, QD
     Route: 065
  5. CARVEDILOL. [Suspect]
     Active Substance: CARVEDILOL
     Indication: PRODUCT USED FOR UNKNOWN INDICATION
     Dosage: UNK
     Route: 065
  6. AMIODARONE HYDROCHLORIDE. [Suspect]
     Active Substance: AMIODARONE HYDROCHLORIDE
     Indication: PRODUCT USED FOR UNKNOWN INDICATION
     Dosage: UNK
     Route: 042
  7. METOPROLOL TARTRATE. [Suspect]
     Active Substance: METOPROLOL TARTRATE
     Indication: PRODUCT USED FOR UNKNOWN INDICATION
     Dosage: 50 MG, QD
     Route: 065

REACTIONS (22)
  - Acute coronary syndrome [Unknown]
  - Blood pressure increased [Recovering/Resolving]
  - Pleural effusion [Recovering/Resolving]
  - Dizziness [Unknown]
  - Palpitations [Unknown]
  - Tricuspid valve incompetence [Recovering/Resolving]
  - Electrocardiogram QT prolonged [Unknown]
  - Ventricular tachycardia [Unknown]
  - Ventricular enlargement [Recovering/Resolving]
  - Hyperaldosteronism [Unknown]
  - Heart rate increased [Unknown]
  - Left ventricular dysfunction [Recovering/Resolving]
  - Torsade de pointes [Unknown]
  - Ventricular arrhythmia [Unknown]
  - Ventricular extrasystoles [Unknown]
  - Hypokinesia [Recovering/Resolving]
  - Blood potassium decreased [Recovered/Resolved]
  - Metabolic alkalosis [Unknown]
  - Pulmonary hypertension [Recovering/Resolving]
  - Adrenal adenoma [Unknown]
  - Chest pain [Unknown]
  - Bradycardia [Unknown]
